FAERS Safety Report 4949417-7 (Version None)
Quarter: 2006Q1

REPORT INFORMATION
  Report Type: 
  Country: None (occurrence: None)
  Receive Date: 20060315
  Receipt Date: 20060302
  Transmission Date: 20060701
  Serious: Yes (Other)
  Sender: FDA-Public Use
  Company Number: 2006031039

PATIENT
  Age: 60 Year
  Sex: Female
  Weight: 56.6996 kg

DRUGS (6)
  1. REVATIO [Suspect]
     Indication: PULMONARY HYPERTENSION
     Dosage: 120 MG (20 MG, 3 IN 1 D), UNKNOWN
     Route: 065
     Dates: start: 20051214
  2. MULTIVITAMIN [Suspect]
     Indication: ILL-DEFINED DISORDER
     Dosage: UNKNOWN
     Route: 065
  3. CALCIUM (CALCIUM) [Suspect]
     Indication: ILL-DEFINED DISORDER
     Dosage: UNKNOWN
     Route: 065
  4. VITAMIN C (VITAMIN C) [Suspect]
     Indication: ILL-DEFINED DISORDER
     Dosage: UNKNOWN (500 MG, UNKNOWN), UNKNOWN
     Route: 065
  5. MAGNESIUM (MAGNESIUM) [Suspect]
     Indication: MUSCLE SPASMS
     Dosage: UNKNOWN
     Route: 065
  6. LEVOTHYROXINE SODIUM [Concomitant]

REACTIONS (7)
  - DEHYDRATION [None]
  - FAECAL INCONTINENCE [None]
  - FOOT FRACTURE [None]
  - MUSCLE SPASMS [None]
  - POLLAKIURIA [None]
  - TINNITUS [None]
  - URINARY INCONTINENCE [None]
